FAERS Safety Report 7568634-3 (Version None)
Quarter: 2011Q2

REPORT INFORMATION
  Report Type: 
  Country: None (occurrence: None)
  Receive Date: 20110623
  Receipt Date: 20110613
  Transmission Date: 20111010
  Serious: Yes (Hospitalization)
  Sender: FDA-Public Use
  Company Number: GXKR2008GB09845

PATIENT
  Age: 34 Year
  Sex: Male

DRUGS (11)
  1. MINOCYCLINE HCL [Suspect]
     Indication: PSEUDOMONAS INFECTION
     Dosage: UNK UKN, UNK
     Route: 065
  2. MINOCYCLINE HCL [Suspect]
     Indication: MYCOBACTERIUM ABSCESSUS INFECTION
  3. CLARITHROMYCIN [Suspect]
     Indication: PSEUDOMONAS INFECTION
     Dosage: UNK UKN, UNK
     Route: 065
  4. MEROPENEM [Suspect]
     Dosage: UNK UKN, UNK
     Route: 042
  5. TOBRAMYCIN [Suspect]
     Indication: MYCOBACTERIUM ABSCESSUS INFECTION
  6. CLARITHROMYCIN [Suspect]
     Indication: MYCOBACTERIUM ABSCESSUS INFECTION
  7. TOBRAMYCIN [Suspect]
     Indication: PSEUDOMONAS INFECTION
     Dosage: UNK UKN, UNK
     Route: 065
  8. INTERFERON GAMMA-1A [Suspect]
     Indication: PSEUDOMONAS INFECTION
     Dosage: UNK UKN, UNK
     Route: 058
  9. OMEPRAZOLE [Suspect]
     Indication: GASTROOESOPHAGEAL REFLUX DISEASE
     Dosage: UNK UKN, UNK
     Route: 065
  10. INTERFERON GAMMA-1A [Suspect]
     Indication: MYCOBACTERIUM ABSCESSUS INFECTION
  11. COLOMYCIN [Suspect]
     Dosage: UNK UKN, UNK
     Route: 042

REACTIONS (9)
  - PSEUDOMEMBRANOUS COLITIS [None]
  - ABDOMINAL PAIN [None]
  - DEHYDRATION [None]
  - NAUSEA [None]
  - TACHYCARDIA [None]
  - HYPOTENSION [None]
  - ABDOMINAL DISTENSION [None]
  - DIARRHOEA [None]
  - PYREXIA [None]
